FAERS Safety Report 10331550 (Version 3)
Quarter: 2014Q4

REPORT INFORMATION
  Report Type: Report from Study
  Country: GR (occurrence: GR)
  Receive Date: 20140722
  Receipt Date: 20141011
  Transmission Date: 20150528
  Serious: Yes (Death, Hospitalization, Other)
  Sender: FDA-Public Use
  Company Number: GR-ABBVIE-14P-066-1258653-00

PATIENT
  Age: 67 Year
  Sex: Female

DRUGS (3)
  1. HUMIRA [Suspect]
     Active Substance: ADALIMUMAB
     Indication: RHEUMATOID ARTHRITIS
     Route: 058
     Dates: start: 20140618, end: 201407
  2. UNSPECIFIED TREATMENT [Concomitant]
     Active Substance: UNSPECIFIED INGREDIENT
     Indication: OSTEOPOROSIS
  3. METHOTREXATE [Concomitant]
     Active Substance: METHOTREXATE
     Indication: RHEUMATOID ARTHRITIS
     Dates: start: 201407

REACTIONS (7)
  - Lung neoplasm malignant [Fatal]
  - White blood cell count decreased [Not Recovered/Not Resolved]
  - Blood potassium decreased [Unknown]
  - Haematocrit decreased [Recovered/Resolved]
  - Blood sodium decreased [Unknown]
  - Malaise [Unknown]
  - Blood iron decreased [Unknown]
